FAERS Safety Report 13084614 (Version 1)
Quarter: 2017Q1

REPORT INFORMATION
  Report Type: Spontaneous
  Country: US (occurrence: US)
  Receive Date: 20170103
  Receipt Date: 20170103
  Transmission Date: 20170428
  Serious: Yes (Hospitalization)
  Sender: FDA-Public Use
  Company Number: None

PATIENT
  Sex: Female

DRUGS (14)
  1. SILDENAFIL 20 MG TAB GREENSTONE LTD [Suspect]
     Active Substance: SILDENAFIL CITRATE
     Indication: PULMONARY ARTERIAL HYPERTENSION
     Route: 048
     Dates: start: 20141106
  2. ACETAZOLAMIDE. [Concomitant]
     Active Substance: ACETAZOLAMIDE
  3. ATENOLOL. [Concomitant]
     Active Substance: ATENOLOL
  4. CITALOPRAM [Concomitant]
     Active Substance: CITALOPRAM HYDROBROMIDE
  5. METOPROLOL TART [Concomitant]
     Active Substance: METOPROLOL TARTRATE
  6. PREDNISONE. [Concomitant]
     Active Substance: PREDNISONE
  7. OMEPRAZOLE. [Concomitant]
     Active Substance: OMEPRAZOLE
  8. KLOR-CON [Concomitant]
     Active Substance: POTASSIUM CHLORIDE
  9. SYMBICORT [Concomitant]
     Active Substance: BUDESONIDE\FORMOTEROL FUMARATE DIHYDRATE
  10. FUROSEMIDE. [Concomitant]
     Active Substance: FUROSEMIDE
  11. CLONIDINE. [Concomitant]
     Active Substance: CLONIDINE
  12. SIMVASTATIN. [Concomitant]
     Active Substance: SIMVASTATIN
  13. AMLODIPINE [Concomitant]
     Active Substance: AMLODIPINE BESYLATE
  14. ISOSORBIDE. [Concomitant]
     Active Substance: ISOSORBIDE

REACTIONS (2)
  - Disease complication [None]
  - Dyspnoea [None]

NARRATIVE: CASE EVENT DATE: 2016
